FAERS Safety Report 20420488 (Version 1)
Quarter: 2022Q1

REPORT INFORMATION
  Report Type: Spontaneous
  Country: US (occurrence: US)
  Receive Date: 20220203
  Receipt Date: 20220203
  Transmission Date: 20220423
  Serious: No
  Sender: FDA-Public Use
  Company Number: US-ELI_LILLY_AND_COMPANY-US202201005995

PATIENT
  Sex: Female

DRUGS (5)
  1. ETESEVIMAB [Suspect]
     Active Substance: ETESEVIMAB
     Indication: COVID-19
     Dosage: UNK, SINGLE
     Route: 042
     Dates: start: 20211217, end: 20211217
  2. BAMLANIVIMAB [Suspect]
     Active Substance: BAMLANIVIMAB
     Indication: COVID-19
     Dosage: UNK, SINGLE
     Route: 042
     Dates: start: 20211217, end: 20211217
  3. ZINC [Concomitant]
     Active Substance: ZINC
     Dosage: UNK, UNKNOWN
  4. QUERCETIN [Concomitant]
     Active Substance: QUERCETIN
     Dosage: UNK, UNKNOWN
  5. CHOLECALCIFEROL [Concomitant]
     Active Substance: CHOLECALCIFEROL
     Dosage: UNK, UNKNOWN

REACTIONS (5)
  - Vein disorder [Recovering/Resolving]
  - Paraesthesia [Recovering/Resolving]
  - Hypoaesthesia [Recovering/Resolving]
  - Infusion site swelling [Recovering/Resolving]
  - Pain in extremity [Recovering/Resolving]
